FAERS Safety Report 18298932 (Version 2)
Quarter: 2020Q4

REPORT INFORMATION
  Report Type: Report from Study
  Country: US (occurrence: US)
  Receive Date: 20200922
  Receipt Date: 20201008
  Transmission Date: 20210113
  Serious: Yes (Hospitalization, Other)
  Sender: FDA-Public Use
  Company Number: US-GILEAD-2020-0495692

PATIENT
  Age: 41 Year
  Sex: Male
  Weight: 54.42 kg

DRUGS (11)
  1. CALCIUM CARBONATE. [Concomitant]
     Active Substance: CALCIUM CARBONATE
     Indication: GASTRITIS
     Dosage: 500 MG
     Route: 048
  2. ASPIRIN (E.C.) [Concomitant]
     Active Substance: ASPIRIN
     Dosage: 81 MG
     Route: 048
  3. AMBRISENTAN [Suspect]
     Active Substance: AMBRISENTAN
     Indication: PULMONARY HYPERTENSION
     Dosage: 5 MG, QD
     Route: 048
  4. FAMOTIDINE. [Concomitant]
     Active Substance: FAMOTIDINE
     Indication: GASTRITIS
     Dosage: 20 MG
     Route: 048
  5. SILDENAFIL. [Concomitant]
     Active Substance: SILDENAFIL
     Indication: CORONARY ARTERY DISEASE
     Dosage: 20 MG
     Route: 048
  6. APIXABAN [Concomitant]
     Active Substance: APIXABAN
     Indication: CEREBROVASCULAR ACCIDENT
     Dosage: 5 MG
     Route: 048
  7. LOSARTAN. [Concomitant]
     Active Substance: LOSARTAN
     Indication: CORONARY ARTERY DISEASE
     Dosage: 25 MG
     Route: 048
  8. CARVEDILOL. [Concomitant]
     Active Substance: CARVEDILOL
     Indication: CORONARY ARTERY DISEASE
     Dosage: 18.25 MG
     Route: 048
  9. FUROSEMIDE. [Concomitant]
     Active Substance: FUROSEMIDE
     Indication: CORONARY ARTERY DISEASE
     Dosage: 80 MG
     Route: 048
  10. SOTALOL. [Concomitant]
     Active Substance: SOTALOL
     Indication: CORONARY ARTERY DISEASE
     Dosage: 80 MG
     Route: 048
  11. POTASSIUM [Concomitant]
     Active Substance: POTASSIUM
     Dosage: 10 MEQ
     Route: 048

REACTIONS (1)
  - Heart valve incompetence [Recovered/Resolved]

NARRATIVE: CASE EVENT DATE: 20200915
